FAERS Safety Report 4452566-3 (Version None)
Quarter: 2004Q3

REPORT INFORMATION
  Report Type: 
  Country: None (occurrence: None)
  Receive Date: 20040916
  Receipt Date: 20040907
  Transmission Date: 20050211
  Serious: Yes (Hospitalization, Other)
  Sender: FDA-Public Use
  Company Number: 2004232683CH

PATIENT
  Sex: Female
  Weight: 57 kg

DRUGS (7)
  1. ALDACTONE [Suspect]
     Dosage: 50 MG, DAILY, ORAL
     Route: 048
  2. GLEEVEC [Suspect]
     Indication: GASTROINTESTINAL CARCINOMA
     Dosage: SEE IMAGE
     Route: 048
     Dates: start: 20040518, end: 20040518
  3. GLEEVEC [Suspect]
     Indication: GASTROINTESTINAL CARCINOMA
     Dosage: SEE IMAGE
     Route: 048
     Dates: start: 20040519, end: 20040626
  4. DIPPERON (PIPAMPERONE) 40 MG [Suspect]
     Dosage: 20 MG, DAILY, ORAL
     Route: 048
  5. TOREM (TORASEMIDE) 10 MG [Suspect]
     Dosage: 20 MG, DAILY, ORAL
     Route: 048
  6. ELTROXI (LEVOTHYROXINE SODIUM) [Concomitant]
  7. MARCOUMAR [Concomitant]

REACTIONS (6)
  - ACCIDENTAL OVERDOSE [None]
  - HYPERAEMIA [None]
  - OEDEMA PERIPHERAL [None]
  - PAIN [None]
  - RASH ERYTHEMATOUS [None]
  - SKIN DESQUAMATION [None]
